FAERS Safety Report 21112094 (Version 1)
Quarter: 2022Q3

REPORT INFORMATION
  Report Type: Report from Study
  Country: US (occurrence: US)
  Receive Date: 20220721
  Receipt Date: 20220721
  Transmission Date: 20221027
  Serious: Yes (Hospitalization)
  Sender: FDA-Public Use
  Company Number: US-PFIZER INC-PV202200021798

PATIENT
  Age: 5 Year
  Sex: Male
  Weight: 29.5 kg

DRUGS (9)
  1. VINCRISTINE SULFATE [Suspect]
     Active Substance: VINCRISTINE SULFATE
     Indication: Acute lymphocytic leukaemia
     Dosage: 1.5 MG, ONCE
     Route: 042
     Dates: start: 20220405, end: 20220405
  2. VINCRISTINE SULFATE [Suspect]
     Active Substance: VINCRISTINE SULFATE
     Dosage: SINGLE DOSE
     Dates: start: 20220531, end: 20220531
  3. METHOTREXATE SODIUM [Suspect]
     Active Substance: METHOTREXATE SODIUM
     Indication: Acute lymphocytic leukaemia
     Dosage: 12 MILLIGRAM, ONCE
     Route: 037
     Dates: start: 20190523, end: 20190523
  4. METHOTREXATE SODIUM [Suspect]
     Active Substance: METHOTREXATE SODIUM
     Dosage: SINGLE DOSE
     Dates: start: 20220405, end: 20220405
  5. RUXOLITINIB [Suspect]
     Active Substance: RUXOLITINIB
     Indication: Acute lymphocytic leukaemia
     Dosage: 50 MG BID D1-14, 29-42, 57-70
     Route: 048
     Dates: start: 20220405
  6. METHOTREXATE [Suspect]
     Active Substance: METHOTREXATE
     Indication: Acute lymphocytic leukaemia
     Dosage: 20 MILLIGRAM/SQ. METER, WEEKLY
     Route: 048
     Dates: start: 20200320, end: 20220621
  7. MERCAPTOPURINE [Suspect]
     Active Substance: MERCAPTOPURINE
     Indication: Acute lymphocytic leukaemia
     Dosage: 25 MG DAILY X 4 DAYS/WEEK
     Route: 048
     Dates: start: 20220308, end: 20220625
  8. MERCAPTOPURINE [Suspect]
     Active Substance: MERCAPTOPURINE
     Dosage: 50 MG DAILY X3 DAYS/WEEK
     Route: 048
     Dates: start: 20220308, end: 20220625
  9. PREDNISONE [Suspect]
     Active Substance: PREDNISONE
     Indication: Acute lymphocytic leukaemia
     Dosage: 20 MILLIGRAM/SQ. METER, BID D1-5, 29-33, 57-61
     Route: 048
     Dates: start: 20200313, end: 20220605

REACTIONS (1)
  - Febrile neutropenia [Recovered/Resolved]

NARRATIVE: CASE EVENT DATE: 20220625
